FAERS Safety Report 20330896 (Version 1)
Quarter: 2022Q1

REPORT INFORMATION
  Report Type: Spontaneous
  Country: GB (occurrence: GB)
  Receive Date: 20220113
  Receipt Date: 20220113
  Transmission Date: 20220423
  Serious: Yes (Other)
  Sender: FDA-Public Use
  Company Number: GB-SA-2022SA003912

PATIENT
  Age: 37 Year
  Sex: Female

DRUGS (2)
  1. LEMTRADA [Suspect]
     Active Substance: ALEMTUZUMAB
     Indication: Relapsing multiple sclerosis
     Dosage: UNK
     Route: 065
     Dates: start: 201710, end: 201710
  2. LEMTRADA [Suspect]
     Active Substance: ALEMTUZUMAB
     Dosage: UNK
     Route: 065
     Dates: start: 201811, end: 201811

REACTIONS (3)
  - Hepatitis [Unknown]
  - Alanine aminotransferase increased [Unknown]
  - Thyroidectomy [Unknown]

NARRATIVE: CASE EVENT DATE: 20201101
